FAERS Safety Report 4971017-3 (Version None)
Quarter: 2006Q2

REPORT INFORMATION
  Report Type: 
  Country: None (occurrence: None)
  Receive Date: 20060411
  Receipt Date: 20060411
  Transmission Date: 20061013
  Serious: Yes (Disabling, Other)
  Sender: FDA-Public Use
  Company Number: None

PATIENT
  Age: 57 Year
  Sex: Female
  Weight: 94.8018 kg

DRUGS (2)
  1. LEVAQUIN [Suspect]
     Indication: SINUSITIS
     Dosage: ONE DAILY PO
     Route: 048
     Dates: start: 20060104, end: 20060113
  2. LEVAQUIN [Suspect]
     Indication: PNEUMONIA
     Dates: start: 20060316, end: 20060325

REACTIONS (16)
  - BRONCHITIS [None]
  - BURNING SENSATION [None]
  - BURSITIS [None]
  - DRUG INEFFECTIVE [None]
  - DRUG TOXICITY [None]
  - GAIT DISTURBANCE [None]
  - HYPOAESTHESIA [None]
  - INSOMNIA [None]
  - MOVEMENT DISORDER [None]
  - MUSCLE TIGHTNESS [None]
  - MUSCULOSKELETAL STIFFNESS [None]
  - NEUROPATHY [None]
  - OEDEMA PERIPHERAL [None]
  - PAIN IN EXTREMITY [None]
  - PNEUMONIA VIRAL [None]
  - TENDONITIS [None]
